FAERS Safety Report 18127089 (Version 1)
Quarter: 2020Q3

REPORT INFORMATION
  Report Type: Report from Study
  Country: None (occurrence: NG)
  Receive Date: 20200810
  Receipt Date: 20200810
  Transmission Date: 20201103
  Serious: Yes (Other)
  Sender: FDA-Public Use
  Company Number: NG-UNICHEM PHARMACEUTICALS (USA) INC-UCM202007-000866

PATIENT

DRUGS (1)
  1. DIVALPROEX SODIUM. [Suspect]
     Active Substance: DIVALPROEX SODIUM
     Indication: EPILEPSY
     Dosage: UNKNOWN

REACTIONS (1)
  - Neuropathy peripheral [Unknown]
